FAERS Safety Report 7884795-0 (Version None)
Quarter: 2011Q4

REPORT INFORMATION
  Report Type: 
  Country: None (occurrence: None)
  Receive Date: 20111102
  Receipt Date: 20111031
  Transmission Date: 20120403
  Serious: Yes (Death, Other)
  Sender: FDA-Public Use
  Company Number: PHHY2011US96228

PATIENT
  Age: 68 Year
  Sex: Male

DRUGS (3)
  1. COLCHICINE [Interacting]
     Indication: ARTHRALGIA
     Dosage: 1 MG, UNK
     Route: 042
  2. COLCHICINE [Interacting]
     Dosage: 1.2 MG, EVERY 2-4HR
     Route: 048
  3. AMIODARONE HCL [Suspect]
     Dosage: 400 MG, TID

REACTIONS (6)
  - RENAL FAILURE ACUTE [None]
  - TOXICITY TO VARIOUS AGENTS [None]
  - DRUG INTERACTION [None]
  - CARDIAC ARREST [None]
  - THROMBOCYTOPENIA [None]
  - INCORRECT DOSE ADMINISTERED [None]
